FAERS Safety Report 4518839-0 (Version None)
Quarter: 2004Q4

REPORT INFORMATION
  Report Type: 
  Country: None (occurrence: None)
  Receive Date: 20041206
  Receipt Date: 20041123
  Transmission Date: 20050328
  Serious: Yes (Other)
  Sender: FDA-Public Use
  Company Number: CA-JNJFOC-20041102504

PATIENT
  Sex: Male

DRUGS (3)
  1. REMICADE [Suspect]
     Dosage: 4TH DOSE
     Route: 042
  2. REMICADE [Suspect]
     Indication: CROHN'S DISEASE
     Dosage: 3RD DOSE.
     Route: 042
  3. IMURAN [Suspect]
     Indication: UNEVALUABLE EVENT

REACTIONS (7)
  - ALCOHOL USE [None]
  - ARTHRALGIA [None]
  - BLINDNESS [None]
  - COORDINATION ABNORMAL [None]
  - PYREXIA [None]
  - REFUSAL OF TREATMENT BY PATIENT [None]
  - VISION BLURRED [None]
